FAERS Safety Report 12357541 (Version 1)
Quarter: 2016Q2

REPORT INFORMATION
  Report Type: Spontaneous
  Country: CA (occurrence: CA)
  Receive Date: 20160512
  Receipt Date: 20160512
  Transmission Date: 20160815
  Serious: Yes (Other)
  Sender: FDA-Public Use
  Company Number: CA-ROCHE-1754912

PATIENT
  Age: 84 Year
  Sex: Female

DRUGS (6)
  1. RITUXAN [Suspect]
     Active Substance: RITUXIMAB
     Indication: NON-HODGKIN^S LYMPHOMA
     Route: 065
  2. ETOPOSIDE. [Concomitant]
     Active Substance: ETOPOSIDE
     Dosage: X 2 DAYS
     Route: 065
     Dates: start: 20160503
  3. PROCARBAZINE [Concomitant]
     Active Substance: PROCARBAZINE
     Dosage: X 2 DAYS
     Route: 065
     Dates: start: 20160503
  4. PREDNISONE. [Concomitant]
     Active Substance: PREDNISONE
     Route: 065
     Dates: start: 201605
  5. RITUXAN [Suspect]
     Active Substance: RITUXIMAB
     Indication: DIFFUSE LARGE B-CELL LYMPHOMA
  6. ONDANSETRAN [Concomitant]
     Active Substance: ONDANSETRON HYDROCHLORIDE
     Route: 065
     Dates: start: 20160503

REACTIONS (4)
  - Cerebral disorder [Unknown]
  - Lymphoma [Not Recovered/Not Resolved]
  - Peripheral swelling [Unknown]
  - Malaise [Unknown]

NARRATIVE: CASE EVENT DATE: 20160417
